FAERS Safety Report 15809900 (Version 1)
Quarter: 2019Q1

REPORT INFORMATION
  Report Type: Spontaneous
  Country: US (occurrence: US)
  Receive Date: 20190111
  Receipt Date: 20190111
  Transmission Date: 20190417
  Serious: No
  Sender: FDA-Public Use
  Company Number: US-ROCHE-2095517

PATIENT
  Age: 75 Year
  Sex: Female

DRUGS (4)
  1. NEOSPORIN (BACITRACIN/NEOMYCIN) [Concomitant]
     Route: 065
     Dates: start: 20180312
  2. RITUXAN [Suspect]
     Active Substance: RITUXIMAB
     Indication: CHRONIC LYMPHOCYTIC LEUKAEMIA
     Route: 042
     Dates: start: 201802
  3. ZYDELIG [Suspect]
     Active Substance: IDELALISIB
     Indication: CHRONIC LYMPHOCYTIC LEUKAEMIA
     Route: 048
     Dates: start: 20180224
  4. RITUXAN [Suspect]
     Active Substance: RITUXIMAB
     Route: 042
     Dates: start: 20180418

REACTIONS (12)
  - Hunger [Not Recovered/Not Resolved]
  - White blood cell disorder [Recovering/Resolving]
  - Increased appetite [Not Recovered/Not Resolved]
  - Oral herpes [Recovering/Resolving]
  - Mouth haemorrhage [Recovering/Resolving]
  - Weight fluctuation [Not Recovered/Not Resolved]
  - Headache [Recovered/Resolved]
  - Oral pain [Recovered/Resolved]
  - Gingival pain [Recovered/Resolved]
  - Blood sodium decreased [Not Recovered/Not Resolved]
  - Glossodynia [Recovered/Resolved]
  - Decreased appetite [Recovering/Resolving]

NARRATIVE: CASE EVENT DATE: 20180224
